FAERS Safety Report 5069041-8 (Version None)
Quarter: 2006Q3

REPORT INFORMATION
  Report Type: 
  Country: None (occurrence: None)
  Receive Date: 20060728
  Receipt Date: 20060630
  Transmission Date: 20061208
  Serious: Yes (Hospitalization)
  Sender: FDA-Public Use
  Company Number: 200613098GDS

PATIENT
  Age: 63 Year
  Sex: Female

DRUGS (6)
  1. NIFEDIPINE [Suspect]
     Indication: HYPERTENSION
     Dosage: 30 MG, TOTAL DAILY, ORAL
     Route: 048
  2. METFORMIN [Suspect]
     Indication: DIABETES MELLITUS
     Dosage: 500 MG, TOTAL DAILY, ORAL
     Route: 048
  3. GLICLAZIDE [Suspect]
     Indication: DIABETES MELLITUS
     Dosage: 30 MG, TOTAL DAILY, ORAL
     Route: 048
  4. CILAZAPRIL [Suspect]
     Indication: HYPERTENSION
     Dosage: 30 MG, TOTAL DAILY, ORAL
     Route: 048
  5. ACARBOSE [Concomitant]
  6. CARVEDILOL [Concomitant]

REACTIONS (4)
  - MALIGNANT MELANOMA [None]
  - MELANOCYTIC NAEVUS [None]
  - RASH PAPULAR [None]
  - UTERINE DISORDER [None]
